FAERS Safety Report 9486813 (Version 1)
Quarter: 2013Q3

REPORT INFORMATION
  Report Type: Spontaneous
  Country: VE (occurrence: VE)
  Receive Date: 20130829
  Receipt Date: 20130829
  Transmission Date: 20140515
  Serious: Yes (Death)
  Sender: FDA-Public Use
  Company Number: VE-PFIZER INC-2013249601

PATIENT
  Age: 78 Year
  Sex: Male

DRUGS (2)
  1. ZOLOFT [Suspect]
     Dosage: 50 MG, UNK
  2. LIPITOR [Concomitant]
     Dosage: 10 MG, UNK

REACTIONS (1)
  - Respiratory arrest [Fatal]
